FAERS Safety Report 11065731 (Version 1)
Quarter: 2015Q2

REPORT INFORMATION
  Report Type: Spontaneous
  Country: US (occurrence: US)
  Receive Date: 20150425
  Receipt Date: 20150425
  Transmission Date: 20150821
  Serious: No
  Sender: FDA-Public Use
  Company Number: US-009507513-1504USA000810

PATIENT
  Age: 13 Year
  Sex: Female

DRUGS (1)
  1. NEXPLANON [Suspect]
     Active Substance: ETONOGESTREL
     Indication: CONTRACEPTION
     Dosage: 1 ROD/ 3 YEARS
     Route: 059

REACTIONS (6)
  - Hypoaesthesia [Recovered/Resolved]
  - Hyperkeratosis [Unknown]
  - Medical device complication [Not Recovered/Not Resolved]
  - Paraesthesia [Recovered/Resolved]
  - Implant site erythema [Unknown]
  - Implant site pruritus [Unknown]
